FAERS Safety Report 21732391 (Version 1)
Quarter: 2022Q4

REPORT INFORMATION
  Report Type: Spontaneous
  Country: US (occurrence: None)
  Receive Date: 20221214
  Receipt Date: 20221214
  Transmission Date: 20230112
  Serious: No
  Sender: FDA-Public Use
  Company Number: None

PATIENT
  Age: 63 Year
  Sex: Male
  Weight: 84.69 kg

DRUGS (11)
  1. EVEROLIMUS [Suspect]
     Active Substance: EVEROLIMUS
     Indication: Neuroendocrine tumour
     Dosage: FREQUENCY : DAILY;?
     Route: 048
  2. AFINITOR [Concomitant]
  3. AMLODIPINE [Concomitant]
  4. DICLOGENAC [Concomitant]
  5. HUMALOG [Concomitant]
  6. INDAPAMIDE [Concomitant]
  7. LANTUS [Concomitant]
  8. ONDANSETRON [Concomitant]
  9. PROMETHAZINE [Concomitant]
  10. SOMATULINE [Concomitant]
  11. SPIRONOLACTONE [Concomitant]

REACTIONS (3)
  - Paracentesis [None]
  - Therapy interrupted [None]
  - Malaise [None]
